FAERS Safety Report 14557905 (Version 1)
Quarter: 2018Q1

REPORT INFORMATION
  Report Type: Report from Study
  Country: DE (occurrence: DE)
  Receive Date: 20180221
  Receipt Date: 20180221
  Transmission Date: 20180509
  Serious: Yes (Hospitalization, Other)
  Sender: FDA-Public Use
  Company Number: DE-PFIZER INC-2018070735

PATIENT
  Age: 76 Year
  Sex: Male

DRUGS (1)
  1. AMIODARONE HCL [Suspect]
     Active Substance: AMIODARONE HYDROCHLORIDE
     Dosage: UNK
     Route: 065
     Dates: end: 20170718

REACTIONS (2)
  - Atrial fibrillation [Recovered/Resolved]
  - Right ventricular failure [Recovered/Resolved]

NARRATIVE: CASE EVENT DATE: 20170722
